FAERS Safety Report 5279901-0 (Version None)
Quarter: 2007Q1

REPORT INFORMATION
  Report Type: 
  Country: None (occurrence: None)
  Receive Date: 20070322
  Receipt Date: 20070312
  Transmission Date: 20070707
  Serious: Yes (Hospitalization)
  Sender: FDA-Public Use
  Company Number: 2007-01159

PATIENT
  Age: 2 Year
  Sex: Female

DRUGS (1)
  1. COLCHICINE (WATSON LABORATORIES)(COLCHICINE) TABLET, 0.6MG [Suspect]
     Indication: ACCIDENTAL POISONING
     Dosage: 1.25 MG/KG, SINGLE, ORAL
     Route: 048
     Dates: start: 20060101, end: 20060101

REACTIONS (12)
  - ABDOMINAL PAIN [None]
  - ACCIDENTAL DRUG INTAKE BY CHILD [None]
  - ACCIDENTAL POISONING [None]
  - ALOPECIA [None]
  - CARDIAC FAILURE [None]
  - DIARRHOEA [None]
  - HYPOKALAEMIA [None]
  - HYPONATRAEMIA [None]
  - HYPOVOLAEMIA [None]
  - PANCYTOPENIA [None]
  - SINUS TACHYCARDIA [None]
  - VOMITING [None]
